FAERS Safety Report 20364215 (Version 7)
Quarter: 2022Q2

REPORT INFORMATION
  Report Type: Spontaneous
  Country: US (occurrence: US)
  Receive Date: 20220121
  Receipt Date: 20220415
  Transmission Date: 20220720
  Serious: Yes (Other)
  Sender: FDA-Public Use
  Company Number: US-PFIZER INC-2020309997

PATIENT
  Age: 75 Year
  Sex: Female
  Weight: 61.23 kg

DRUGS (2)
  1. ESTRING [Suspect]
     Active Substance: ESTRADIOL
     Indication: Oestrogen therapy
     Dosage: 1 APPLICATION EVERY 3 MONTHS
     Route: 067
     Dates: start: 2020
  2. ESTRING [Suspect]
     Active Substance: ESTRADIOL
     Indication: Urinary incontinence

REACTIONS (7)
  - Pneumonia [Unknown]
  - Illness [Unknown]
  - Surgery [Unknown]
  - Anxiety [Recovering/Resolving]
  - Depression [Recovering/Resolving]
  - Stress urinary incontinence [Unknown]
  - Pollakiuria [Unknown]

NARRATIVE: CASE EVENT DATE: 20210101
